FAERS Safety Report 5161198-3 (Version None)
Quarter: 2006Q4

REPORT INFORMATION
  Report Type: 
  Country: None (occurrence: None)
  Receive Date: 20061130
  Receipt Date: 20060814
  Transmission Date: 20070319
  Serious: Yes (Hospitalization)
  Sender: FDA-Public Use
  Company Number: US-BRISTOL-MYERS SQUIBB COMPANY-13474721

PATIENT
  Age: 73 Year
  Sex: Male

DRUGS (5)
  1. ERBITUX [Suspect]
     Indication: COLON CANCER
     Route: 042
     Dates: start: 20060814
  2. ZANTAC [Concomitant]
     Indication: PREMEDICATION
  3. BENADRYL [Concomitant]
     Indication: PREMEDICATION
  4. DECADRON [Concomitant]
     Indication: PREMEDICATION
  5. KYTRIL [Concomitant]
     Indication: PREMEDICATION

REACTIONS (1)
  - ANAPHYLACTIC SHOCK [None]
